FAERS Safety Report 13791689 (Version 1)
Quarter: 2017Q3

REPORT INFORMATION
  Report Type: Spontaneous
  Country: US (occurrence: US)
  Receive Date: 20170725
  Receipt Date: 20170725
  Transmission Date: 20171127
  Serious: Yes (Hospitalization, Disabling, Other)
  Sender: FDA-Public Use
  Company Number: None

PATIENT
  Age: 55 Year
  Sex: Female
  Weight: 120.1 kg

DRUGS (14)
  1. CALCIUM + POTASSIUM [Concomitant]
  2. XARELTO [Concomitant]
     Active Substance: RIVAROXABAN
  3. THIAMIN [Concomitant]
     Active Substance: THIAMINE
  4. METFORMIN [Concomitant]
     Active Substance: METFORMIN HYDROCHLORIDE
  5. PROPOFOL. [Suspect]
     Active Substance: PROPOFOL
     Indication: RESPIRATORY DISORDER
     Route: 042
  6. VITAMIN C [Concomitant]
     Active Substance: ASCORBIC ACID
  7. INSULIN + LASIX [Concomitant]
  8. GABAPENTIN. [Concomitant]
     Active Substance: GABAPENTIN
  9. MORPHINE SULFATE. [Concomitant]
     Active Substance: MORPHINE SULFATE
  10. POTASSIUM [Concomitant]
     Active Substance: POTASSIUM
  11. MSM [Concomitant]
     Active Substance: DIMETHYL SULFONE
  12. VITAMIN B12 [Concomitant]
     Active Substance: CYANOCOBALAMIN
  13. DILAUDID [Concomitant]
     Active Substance: HYDROMORPHONE HYDROCHLORIDE
  14. MULTIVITAMIN [Concomitant]
     Active Substance: VITAMINS

REACTIONS (1)
  - Paralysis [None]

NARRATIVE: CASE EVENT DATE: 20110426
